FAERS Safety Report 21487455 (Version 1)
Quarter: 2022Q4

REPORT INFORMATION
  Report Type: Spontaneous
  Country: FR (occurrence: FR)
  Receive Date: 20221020
  Receipt Date: 20221020
  Transmission Date: 20230112
  Serious: Yes (Hospitalization)
  Sender: FDA-Public Use
  Company Number: None

PATIENT
  Age: 49 Year
  Sex: Female

DRUGS (2)
  1. INDAPAMIDE [Suspect]
     Active Substance: INDAPAMIDE
     Indication: Congestive cardiomyopathy
     Dosage: 0.63 MILLIGRAM QD
     Route: 048
     Dates: start: 202204
  2. FUROSEMIDE [Suspect]
     Active Substance: FUROSEMIDE
     Indication: Congestive cardiomyopathy
     Dosage: LONG-TERM TREATMENT
     Route: 048

REACTIONS (2)
  - Hypokalaemia [Recovered/Resolved]
  - Acute kidney injury [Recovered/Resolved]

NARRATIVE: CASE EVENT DATE: 20220416
